FAERS Safety Report 14126591 (Version 5)
Quarter: 2019Q4

REPORT INFORMATION
  Report Type: Report from Study
  Country: US (occurrence: US)
  Receive Date: 20171025
  Receipt Date: 20191104
  Transmission Date: 20200122
  Serious: Yes (Other)
  Sender: FDA-Public Use
  Company Number: US-ACTELION-A-US2014-110352

PATIENT
  Age: 69 Year
  Sex: Female
  Weight: 62.59 kg

DRUGS (10)
  1. LETAIRIS [Suspect]
     Active Substance: AMBRISENTAN
     Indication: PRODUCT USED FOR UNKNOWN INDICATION
     Dosage: 10 MG, QD
     Route: 065
     Dates: start: 20120413
  2. ADCIRCA [Concomitant]
     Active Substance: TADALAFIL
  3. VENTAVIS [Suspect]
     Active Substance: ILOPROST
     Indication: PULMONARY HYPERTENSION
     Dosage: 5 MCG, 6-9X/DAY
     Route: 055
     Dates: start: 20120412, end: 20170620
  4. ORENITRAM [Suspect]
     Active Substance: TREPROSTINIL
     Dosage: 1.75 MG, BID
     Route: 065
  5. AMLODIPINE [Concomitant]
     Active Substance: AMLODIPINE BESYLATE
  6. ORENITRAM [Suspect]
     Active Substance: TREPROSTINIL
     Indication: PULMONARY HYPERTENSION
     Dosage: 2.0 MG, BID
     Route: 065
  7. VENTAVIS [Suspect]
     Active Substance: ILOPROST
     Dosage: 5 MCG, 6 X/ADAY
     Route: 055
  8. ORENITRAM [Suspect]
     Active Substance: TREPROSTINIL
     Dosage: 1.5 MG, BID
     Route: 048
  9. ORENITRAM [Suspect]
     Active Substance: TREPROSTINIL
     Dosage: 1 MG, BID
     Route: 048
     Dates: start: 20170601
  10. ORENITRAM [Suspect]
     Active Substance: TREPROSTINIL
     Dosage: 1. 5MGAM, 0.75 MG AFTERNOON,1.5 MG PM
     Route: 048

REACTIONS (25)
  - Vomiting [Not Recovered/Not Resolved]
  - Dyspnoea exertional [Unknown]
  - Groin pain [Not Recovered/Not Resolved]
  - Condition aggravated [Unknown]
  - Malaise [Unknown]
  - Adverse event [Unknown]
  - Haemoptysis [Unknown]
  - Dizziness exertional [Not Recovered/Not Resolved]
  - Myalgia [Unknown]
  - Infection [Recovered/Resolved]
  - Pulmonary hypertension [Unknown]
  - Unevaluable event [Unknown]
  - Weight decreased [Unknown]
  - Nasopharyngitis [Unknown]
  - Pain in extremity [Not Recovered/Not Resolved]
  - Hypoaesthesia [Unknown]
  - Influenza [Unknown]
  - Varicose vein [Unknown]
  - Bronchitis [Unknown]
  - Oropharyngeal pain [Unknown]
  - Headache [Recovering/Resolving]
  - Arthralgia [Unknown]
  - Nausea [Not Recovered/Not Resolved]
  - Dyspnoea [Not Recovered/Not Resolved]
  - Feeling abnormal [Unknown]

NARRATIVE: CASE EVENT DATE: 20160131
